FAERS Safety Report 9458383 (Version 1)
Quarter: 2013Q3

REPORT INFORMATION
  Report Type: Spontaneous
  Country: BR (occurrence: BR)
  Receive Date: 20130814
  Receipt Date: 20130814
  Transmission Date: 20140515
  Serious: Yes (Hospitalization, Other)
  Sender: FDA-Public Use
  Company Number: BR-PFIZER INC-2013231259

PATIENT
  Age: 57 Year
  Sex: Male
  Weight: 82 kg

DRUGS (4)
  1. CITALOR [Suspect]
     Dosage: 40 MG, 1X/DAY
     Dates: start: 2012
  2. ASPIRINA PREVENT [Concomitant]
     Dosage: UNK
  3. BRILINTA [Concomitant]
     Dosage: UNK
  4. GALVUS [Concomitant]
     Dosage: UNK

REACTIONS (2)
  - Arterial disorder [Unknown]
  - Chest pain [Unknown]
